FAERS Safety Report 7019655-0 (Version None)
Quarter: 2010Q3

REPORT INFORMATION
  Report Type: 
  Country: None (occurrence: None)
  Receive Date: 20100928
  Receipt Date: 20100921
  Transmission Date: 20110219
  Serious: Yes (Hospitalization)
  Sender: FDA-Public Use
  Company Number: PHHO2005AU16024

PATIENT
  Sex: Male
  Weight: 82 kg

DRUGS (8)
  1. EVEROLIMUS [Suspect]
     Indication: LUNG TRANSPLANT
     Dosage: 0.75 MG, BID
     Route: 048
     Dates: start: 20051116, end: 20051204
  2. EVEROLIMUS [Suspect]
     Dosage: 0.55 MG, BID
     Route: 048
     Dates: start: 20051207
  3. EVEROLIMUS [Suspect]
     Dosage: 0.5 MG, BID
     Route: 048
     Dates: end: 20060427
  4. ERL 080A ERL+TAB [Suspect]
     Indication: LUNG TRANSPLANT
     Dosage: 1080 MG /DAY
     Route: 048
     Dates: start: 20050924, end: 20050928
  5. ERL 080A ERL+TAB [Suspect]
     Dosage: UNK
     Dates: start: 20050930
  6. STEROIDS NOS [Concomitant]
     Dosage: 15 MG, BID
     Route: 042
  7. PANTOPRAZOLE [Concomitant]
  8. RANITIDINE [Concomitant]

REACTIONS (39)
  - ABDOMINAL DISTENSION [None]
  - ABDOMINAL PAIN [None]
  - ANAEMIA [None]
  - ATRIAL FIBRILLATION [None]
  - BLOOD GLUCOSE INCREASED [None]
  - COLECTOMY [None]
  - COLLAPSE OF LUNG [None]
  - COLONIC PSEUDO-OBSTRUCTION [None]
  - CONCOMITANT DISEASE PROGRESSION [None]
  - COUGH [None]
  - DECREASED APPETITE [None]
  - DEHYDRATION [None]
  - DIARRHOEA [None]
  - DYSPNOEA [None]
  - HAEMATOMA [None]
  - HAEMATOMA EVACUATION [None]
  - HYPOPHAGIA [None]
  - HYPOTENSION [None]
  - HYPOXIA [None]
  - ILEOSTOMY [None]
  - INCISIONAL HERNIA [None]
  - INTESTINAL DILATATION [None]
  - LAPAROTOMY [None]
  - LETHARGY [None]
  - LEUKOPENIA [None]
  - LOBAR PNEUMONIA [None]
  - LUNG DISORDER [None]
  - LUNG INFILTRATION [None]
  - MALAISE [None]
  - PYREXIA [None]
  - RESPIRATORY ARREST [None]
  - RESPIRATORY DISTRESS [None]
  - RESPIRATORY FAILURE [None]
  - SMALL INTESTINAL OBSTRUCTION [None]
  - SPUTUM PURULENT [None]
  - THORACIC HAEMORRHAGE [None]
  - THORACOTOMY [None]
  - THROMBOCYTOPENIA [None]
  - VOMITING [None]
